FAERS Safety Report 17251267 (Version 2)
Quarter: 2020Q1

REPORT INFORMATION
  Report Type: Spontaneous
  Country: IL (occurrence: IL)
  Receive Date: 20200109
  Receipt Date: 20200114
  Transmission Date: 20200409
  Serious: No
  Sender: FDA-Public Use
  Company Number: IL-TEVA-2020-IL-1164780

PATIENT
  Sex: Female

DRUGS (2)
  1. ADVIL [Suspect]
     Active Substance: IBUPROFEN
     Route: 065
  2. ACAMOL [Suspect]
     Active Substance: ACETAMINOPHEN
     Route: 065

REACTIONS (2)
  - Overdose [Unknown]
  - Maternal exposure during pregnancy [Unknown]
